FAERS Safety Report 5655053-X (Version None)
Quarter: 2008Q1

REPORT INFORMATION
  Report Type: 
  Country: None (occurrence: None)
  Receive Date: 20080307
  Receipt Date: 20071126
  Transmission Date: 20080703
  Serious: No
  Sender: FDA-Public Use
  Company Number: A0692341A

PATIENT
  Sex: Female

DRUGS (2)
  1. REQUIP [Suspect]
     Indication: RESTLESS LEGS SYNDROME
     Dosage: 1.5MG SEE DOSAGE TEXT
     Route: 048
  2. PAIN MEDICATION [Concomitant]

REACTIONS (4)
  - ADVERSE EVENT [None]
  - DRUG INEFFECTIVE [None]
  - JOINT SWELLING [None]
  - SLEEP DISORDER [None]
